FAERS Safety Report 9652767 (Version 1)
Quarter: 2013Q4

REPORT INFORMATION
  Report Type: Spontaneous
  Country: US (occurrence: US)
  Receive Date: 20131029
  Receipt Date: 20131029
  Transmission Date: 20140711
  Serious: No
  Sender: FDA-Public Use
  Company Number: US-TEVA-440967USA

PATIENT
  Sex: Male

DRUGS (1)
  1. QVAR [Suspect]
     Indication: ASTHMA

REACTIONS (2)
  - Weight increased [Unknown]
  - Expired drug administered [Unknown]
